FAERS Safety Report 5527425-5 (Version None)
Quarter: 2007Q4

REPORT INFORMATION
  Report Type: 
  Country: None (occurrence: None)
  Receive Date: 20071123
  Receipt Date: 20071115
  Transmission Date: 20080405
  Serious: Yes (Hospitalization, Other)
  Sender: FDA-Public Use
  Company Number: 2007US000991

PATIENT
  Age: 64 Year
  Sex: Male
  Weight: 117.9 kg

DRUGS (2)
  1. AMEVIVE [Suspect]
     Indication: PSORIASIS
     Dosage: 15 MG, WEEKLY, INTRAMUSCULAR
     Route: 030
     Dates: start: 20031121, end: 20060616
  2. SORIATANE [Concomitant]

REACTIONS (17)
  - ATRIAL FIBRILLATION [None]
  - ATRIAL FLUTTER [None]
  - CONDITION AGGRAVATED [None]
  - DIALYSIS [None]
  - GALLOP RHYTHM PRESENT [None]
  - HYPERGLYCAEMIA [None]
  - HYPOGLYCAEMIA [None]
  - HYPOTENSION [None]
  - LEUKOPENIA [None]
  - PITTING OEDEMA [None]
  - PUSTULAR PSORIASIS [None]
  - RENAL FAILURE ACUTE [None]
  - RESPIRATORY FAILURE [None]
  - STAPHYLOCOCCAL BACTERAEMIA [None]
  - STRESS [None]
  - SUPRAVENTRICULAR TACHYCARDIA [None]
  - WOUND INFECTION STAPHYLOCOCCAL [None]
